FAERS Safety Report 5674046-X (Version None)
Quarter: 2008Q1

REPORT INFORMATION
  Report Type: 
  Country: None (occurrence: None)
  Receive Date: 20080319
  Receipt Date: 20080319
  Transmission Date: 20080703
  Serious: Yes (Hospitalization)
  Sender: FDA-Public Use
  Company Number: None

PATIENT
  Sex: Female
  Weight: 58.8 kg

DRUGS (2)
  1. ADRIAMYCIN [Suspect]
     Indication: BREAST CANCER
     Dosage: 60MG/M2 EVERY 2 WKS IV
     Route: 042
     Dates: start: 20080227
  2. CYTOXAN [Suspect]
     Indication: BREAST CANCER
     Dosage: 600MG/M2 EVERY 2 WKS IV
     Route: 042
     Dates: start: 20080227

REACTIONS (8)
  - DEHYDRATION [None]
  - DIARRHOEA [None]
  - DIZZINESS [None]
  - HEAD INJURY [None]
  - LACERATION [None]
  - LOSS OF CONSCIOUSNESS [None]
  - NAUSEA [None]
  - VOMITING [None]
